FAERS Safety Report 5323678-7 (Version None)
Quarter: 2007Q2

REPORT INFORMATION
  Report Type: 
  Country: None (occurrence: None)
  Receive Date: 20070514
  Receipt Date: 20070502
  Transmission Date: 20071010
  Serious: Yes (Death, Hospitalization)
  Sender: FDA-Public Use
  Company Number: GB-ROCHE-489959

PATIENT
  Age: 69 Year
  Sex: Male
  Weight: 72 kg

DRUGS (3)
  1. CAPECITABINE [Suspect]
     Route: 048
     Dates: start: 20061017, end: 20061127
  2. CISPLATIN [Suspect]
     Dosage: FREQUENCY NOT REPORTED
     Route: 042
     Dates: start: 20061017, end: 20061127
  3. EPIRUBICIN [Suspect]
     Dosage: THE PATIENT RECEIVED 3 CYCLES OF EPIRUBICIN
     Route: 042
     Dates: end: 20061127

REACTIONS (2)
  - CEREBRAL HAEMORRHAGE [None]
  - DYSPNOEA [None]
